FAERS Safety Report 7876154-1 (Version None)
Quarter: 2011Q4

REPORT INFORMATION
  Report Type: 
  Country: None (occurrence: None)
  Receive Date: 20111031
  Receipt Date: 20111025
  Transmission Date: 20120403
  Serious: Yes (Death, Other)
  Sender: FDA-Public Use
  Company Number: JP-ELI_LILLY_AND_COMPANY-JP201110006712

PATIENT
  Age: 65 Year
  Sex: Female

DRUGS (2)
  1. CARBOPLATIN [Concomitant]
     Indication: OVARIAN CANCER RECURRENT
     Dosage: 4 AUC, UNK
     Route: 042
  2. GEMZAR [Suspect]
     Indication: OVARIAN CANCER RECURRENT
     Dosage: 800 MG/M2, UNK
     Route: 042

REACTIONS (3)
  - BLOOD COUNT ABNORMAL [None]
  - SEPSIS [None]
  - PNEUMONIA [None]
